FAERS Safety Report 4541459-9 (Version None)
Quarter: 2004Q4

REPORT INFORMATION
  Report Type: 
  Country: None (occurrence: None)
  Receive Date: 20041223
  Receipt Date: 20041011
  Transmission Date: 20050328
  Serious: No
  Sender: FDA-Public Use
  Company Number: US-JNJFOC-20041004117

PATIENT
  Age: 43 Year
  Sex: Female

DRUGS (2)
  1. ORTHO EVRA [Suspect]
     Indication: CONTRACEPTION
     Dosage: 1 DOSE(S), 3 IN 4 WEEK, TRANSDERMAL
     Route: 062
     Dates: start: 20040926, end: 20041007
  2. IBUPROFEN [Concomitant]

REACTIONS (3)
  - APPLICATION SITE REACTION [None]
  - MIGRAINE [None]
  - WITHDRAWAL BLEED [None]
